FAERS Safety Report 8559216-5 (Version None)
Quarter: 2012Q3

REPORT INFORMATION
  Report Type: 
  Country: None (occurrence: None)
  Receive Date: 20120802
  Receipt Date: 20120726
  Transmission Date: 20120928
  Serious: Yes (Hospitalization, Other)
  Sender: FDA-Public Use
  Company Number: US-BRISTOL-MYERS SQUIBB COMPANY-14337356

PATIENT
  Age: 79 Year
  Sex: Male

DRUGS (9)
  1. FLOMAX [Concomitant]
     Dates: start: 20040101
  2. IPILIMUMAB [Suspect]
     Indication: MALIGNANT MELANOMA
     Route: 042
     Dates: start: 20080303
  3. ATENOLOL [Concomitant]
     Dates: start: 20030101
  4. FOSINOPRIL SODIUM [Concomitant]
     Dates: start: 20030101
  5. PLAVIX [Concomitant]
  6. PROSCAR [Concomitant]
  7. SYNTHROID [Concomitant]
  8. LISINOPRIL [Concomitant]
  9. ATENOLOL [Concomitant]

REACTIONS (2)
  - HYPOPHYSITIS [None]
  - FATIGUE [None]
